FAERS Safety Report 11909918 (Version 2)
Quarter: 2016Q1

REPORT INFORMATION
  Report Type: Spontaneous
  Country: US (occurrence: US)
  Receive Date: 20160112
  Receipt Date: 20160120
  Transmission Date: 20160526
  Serious: Yes (Hospitalization, Other)
  Sender: FDA-Public Use
  Company Number: US-UNITED THERAPEUTICS-UNT-2015-015552

PATIENT
  Age: 62 Year
  Sex: Male
  Weight: 74.83 kg

DRUGS (5)
  1. REMODULIN [Suspect]
     Active Substance: TREPROSTINIL
     Dosage: 0.040 ?G/KG, CONTINUING
     Route: 041
  2. REMODULIN [Suspect]
     Active Substance: TREPROSTINIL
     Indication: PULMONARY ARTERIAL HYPERTENSION
     Dosage: 0.038 ?G/KG, CONTINUING
     Route: 041
     Dates: start: 20150504
  3. REMODULIN [Suspect]
     Active Substance: TREPROSTINIL
     Dosage: 0.039 ?G/KG, CONTINUING
     Route: 041
  4. OPSUMIT [Suspect]
     Active Substance: MACITENTAN
     Indication: PRODUCT USED FOR UNKNOWN INDICATION
     Dosage: UNK
  5. WARFARIN [Concomitant]
     Active Substance: WARFARIN
     Indication: PRODUCT USED FOR UNKNOWN INDICATION

REACTIONS (10)
  - Dry throat [Unknown]
  - Cardiac failure [Unknown]
  - Fluid retention [Unknown]
  - Nasal congestion [Unknown]
  - Oedema peripheral [Unknown]
  - Epistaxis [Unknown]
  - Renal disorder [Unknown]
  - Dyspnoea [Unknown]
  - Nasal dryness [Unknown]
  - Adverse event [Unknown]

NARRATIVE: CASE EVENT DATE: 201511
